FAERS Safety Report 18647951 (Version 2)
Quarter: 2020Q4

REPORT INFORMATION
  Report Type: Spontaneous
  Country: ES (occurrence: ES)
  Receive Date: 20201222
  Receipt Date: 20201228
  Transmission Date: 20210114
  Serious: Yes (Hospitalization, Other)
  Sender: FDA-Public Use
  Company Number: ES-BRISTOL-MYERS SQUIBB COMPANY-BMS-2020-107968

PATIENT
  Age: 67 Year
  Sex: Male

DRUGS (9)
  1. CYTARABINE. [Suspect]
     Active Substance: CYTARABINE
     Indication: BLAST CRISIS IN MYELOGENOUS LEUKAEMIA
     Dosage: 2 GRAM PER SQUARE METRE,DAYS 1 TO 4
     Route: 042
  2. G-CSF [Concomitant]
     Active Substance: GRANULOCYTE COLONY-STIMULATING FACTOR NOS
     Indication: BLAST CRISIS IN MYELOGENOUS LEUKAEMIA
     Dosage: 300 MICROGRAM/SQ. METER,ON DAYS 1-5
     Route: 058
  3. DASATINIB. [Suspect]
     Active Substance: DASATINIB
     Indication: BLAST CRISIS IN MYELOGENOUS LEUKAEMIA
     Dosage: 100 MG
     Route: 065
  4. DASATINIB. [Suspect]
     Active Substance: DASATINIB
     Dosage: 140 MG
     Route: 065
  5. HYDREA [Suspect]
     Active Substance: HYDROXYUREA
     Indication: BLAST CRISIS IN MYELOGENOUS LEUKAEMIA
     Route: 065
  6. DASATINIB. [Suspect]
     Active Substance: DASATINIB
     Dosage: UNK
     Route: 065
  7. FLUDARABINE PHOSPHATE. [Suspect]
     Active Substance: FLUDARABINE PHOSPHATE
     Indication: BLAST CRISIS IN MYELOGENOUS LEUKAEMIA
     Dosage: 30 MILLIGRAM/SQ. METER,DAYS 1 TO 4
     Route: 042
  8. IDARUBICIN [Suspect]
     Active Substance: IDARUBICIN
     Indication: BLAST CRISIS IN MYELOGENOUS LEUKAEMIA
     Dosage: UNK
     Route: 042
  9. IDARUBICIN [Suspect]
     Active Substance: IDARUBICIN
     Dosage: 10 MILLIGRAM/SQ. METER,DAYS 1 TO 3
     Route: 042

REACTIONS (7)
  - Cytomegalovirus infection [Recovered/Resolved]
  - Diarrhoea [Unknown]
  - Cytomegalovirus infection reactivation [Recovered/Resolved]
  - Staphylococcal bacteraemia [Unknown]
  - Aspergillus infection [Recovered/Resolved]
  - Thrombocytopenia [Unknown]
  - Neutropenia [Unknown]
